FAERS Safety Report 17305660 (Version 2)
Quarter: 2020Q1

REPORT INFORMATION
  Report Type: Report from Study
  Country: GB (occurrence: GB)
  Receive Date: 20200123
  Receipt Date: 20200130
  Transmission Date: 20200409
  Serious: Yes (Hospitalization, Disabling)
  Sender: FDA-Public Use
  Company Number: GB-PFIZER INC-2020024053

PATIENT
  Age: 22 Year
  Sex: Male

DRUGS (11)
  1. THIOPENTAL SODIUM. [Suspect]
     Active Substance: THIOPENTAL SODIUM
     Indication: STATUS EPILEPTICUS
     Dosage: UNK (UP TO 7 MG/KG/HR)
     Route: 042
  2. PERAMPANEL [Concomitant]
     Active Substance: PERAMPANEL
     Indication: STATUS EPILEPTICUS
     Dosage: UNK (UP-TITRATED TO 14 MG DAILY)
     Route: 065
  3. FENTANYL. [Suspect]
     Active Substance: FENTANYL
     Indication: STATUS EPILEPTICUS
     Dosage: UNK (UP TO 300UG/KG/H)
  4. MIDAZOLAM HYDROCHLORIDE. [Suspect]
     Active Substance: MIDAZOLAM HYDROCHLORIDE
     Indication: STATUS EPILEPTICUS
     Dosage: UNK (UP TO 20 MG/HR)
  5. PROPOFOL. [Suspect]
     Active Substance: PROPOFOL
     Indication: STATUS EPILEPTICUS
     Dosage: UNK (5 MG/KG/HR)
  6. CLONAZEPAM. [Concomitant]
     Active Substance: CLONAZEPAM
     Indication: STATUS EPILEPTICUS
     Dosage: UNK
     Route: 065
  7. TOPIRAMATE. [Concomitant]
     Active Substance: TOPIRAMATE
     Indication: STATUS EPILEPTICUS
     Dosage: UNK
     Route: 042
  8. CLOBAZAM. [Concomitant]
     Active Substance: CLOBAZAM
     Indication: STATUS EPILEPTICUS
     Dosage: UNK
     Route: 065
  9. LACOSAMIDE. [Concomitant]
     Active Substance: LACOSAMIDE
     Indication: STATUS EPILEPTICUS
     Dosage: UNK
     Route: 065
  10. KETAMINE HCL [Suspect]
     Active Substance: KETAMINE HYDROCHLORIDE
     Indication: STATUS EPILEPTICUS
     Dosage: UNK (TITRATED UP TO 6 MG/KG/HR)
  11. METHYLPREDNISOLONE. [Concomitant]
     Active Substance: METHYLPREDNISOLONE
     Indication: STATUS EPILEPTICUS
     Dosage: 1 G, UNK (1 G/DAY)
     Route: 042

REACTIONS (29)
  - Hypothyroidism [Unknown]
  - Decubitus ulcer [Unknown]
  - Muscle contracture [Unknown]
  - Liver function test abnormal [Unknown]
  - Rash [Unknown]
  - Tachycardia [Unknown]
  - Partial seizures [Not Recovered/Not Resolved]
  - Hypernatraemia [Unknown]
  - Behaviour disorder [Unknown]
  - Intensive care unit acquired weakness [Unknown]
  - Hypotension [Unknown]
  - Cognitive disorder [Unknown]
  - Pyrexia [Unknown]
  - Weight decreased [Unknown]
  - Hypercalcaemia [Unknown]
  - Bradycardia [Unknown]
  - Anaemia [Unknown]
  - Infection [Unknown]
  - Acute lung injury [Unknown]
  - Thrombophlebitis [Unknown]
  - Ileus [Unknown]
  - Memory impairment [Unknown]
  - Deep vein thrombosis [Unknown]
  - Haematuria [Unknown]
  - Abdominal compartment syndrome [Unknown]
  - Drug hypersensitivity [Unknown]
  - Acute kidney injury [Unknown]
  - Coagulopathy [Unknown]
  - Fungal infection [Unknown]
